FAERS Safety Report 17450488 (Version 1)
Quarter: 2020Q1

REPORT INFORMATION
  Report Type: Spontaneous
  Country: ES (occurrence: ES)
  Receive Date: 20200224
  Receipt Date: 20200224
  Transmission Date: 20200409
  Serious: Yes (Other)
  Sender: FDA-Public Use
  Company Number: ES-ELI_LILLY_AND_COMPANY-ES202002005505

PATIENT
  Age: 75 Year
  Sex: Male

DRUGS (3)
  1. ATEZOLIZUMAB. [Suspect]
     Active Substance: ATEZOLIZUMAB
     Indication: TRANSITIONAL CELL CARCINOMA URETHRA
     Dosage: RECEIVED FIRST INFUSION 12 DAYS PRIOR TO THE ONSET OF SYMPTOMS
     Route: 065
  2. GEMCITABINE HYDROCHLORIDE. [Suspect]
     Active Substance: GEMCITABINE HYDROCHLORIDE
     Indication: TRANSITIONAL CELL CARCINOMA URETHRA
     Dosage: 1250 MG/M2, CYCLICAL (DAYS 1, 8, 21 OF 21-DAY CYCLE)
     Route: 065
  3. CISPLATIN. [Suspect]
     Active Substance: CISPLATIN
     Indication: TRANSITIONAL CELL CARCINOMA URETHRA
     Dosage: 75 MG/M2, CYCLICAL (DAY 1 OF 21-DAY CYCLE)
     Route: 065

REACTIONS (6)
  - Renal injury [Unknown]
  - Off label use [Unknown]
  - Asthenia [Unknown]
  - Vomiting [Unknown]
  - Therapy non-responder [Unknown]
  - Psoriasis [Recovered/Resolved]
